FAERS Safety Report 8960082 (Version 3)
Quarter: 2013Q2

REPORT INFORMATION
  Report Type: Spontaneous
  Country: US (occurrence: US)
  Receive Date: 20121211
  Receipt Date: 20130529
  Transmission Date: 20140414
  Serious: Yes (Death)
  Sender: FDA-Public Use
  Company Number: US-GLAXOSMITHKLINE-A1004054A

PATIENT
  Age: 64 Year
  Sex: Female
  Weight: 61.8 kg

DRUGS (21)
  1. TYKERB [Suspect]
     Indication: BREAST CANCER METASTATIC
     Dosage: 4TAB PER DAY
     Route: 048
     Dates: start: 20121001, end: 20121203
  2. HERCEPTIN [Concomitant]
  3. BYSTOLIC [Concomitant]
  4. CARTIA XT [Concomitant]
  5. CELEBREX [Concomitant]
  6. DEPLIN [Concomitant]
  7. DIPHENOXYLATE [Concomitant]
  8. LORATADINE [Concomitant]
  9. LUNESTA [Concomitant]
  10. MEGACE [Concomitant]
  11. MORPHINE SULFATE [Concomitant]
  12. SINGULAIR [Concomitant]
  13. XARELTO [Concomitant]
  14. LORAZEPAM [Concomitant]
  15. VENLAFAXINE [Concomitant]
  16. BENADRYL [Concomitant]
  17. CALCIUM [Concomitant]
  18. FISH OIL [Concomitant]
  19. VITAMINS [Concomitant]
  20. ACETAMINOPHEN [Concomitant]
  21. XGEVA [Concomitant]
     Dates: start: 20121126

REACTIONS (6)
  - Herpes ophthalmic [Unknown]
  - Diarrhoea [Recovered/Resolved]
  - Oral herpes [Not Recovered/Not Resolved]
  - Periorbital oedema [Unknown]
  - Disease progression [Fatal]
  - Drug ineffective [Unknown]
